FAERS Safety Report 13384727 (Version 1)
Quarter: 2017Q1

REPORT INFORMATION
  Report Type: Spontaneous
  Country: AU (occurrence: AU)
  Receive Date: 20170329
  Receipt Date: 20170329
  Transmission Date: 20170429
  Serious: Yes (Other)
  Sender: FDA-Public Use
  Company Number: PHHY2017AU045156

PATIENT

DRUGS (1)
  1. DICLOFENAC SODIUM. [Suspect]
     Active Substance: DICLOFENAC SODIUM
     Indication: PRODUCT USED FOR UNKNOWN INDICATION
     Route: 065

REACTIONS (8)
  - Drug abuse [Unknown]
  - Hypokalaemia [Unknown]
  - Pain in extremity [Unknown]
  - Microcytic anaemia [Unknown]
  - Renal tubular acidosis [Unknown]
  - Acidosis hyperchloraemic [Unknown]
  - Overdose [Unknown]
  - Muscular weakness [Unknown]
